FAERS Safety Report 21728488 (Version 1)
Quarter: 2022Q4

REPORT INFORMATION
  Report Type: Report from Study
  Country: US (occurrence: US)
  Receive Date: 20221214
  Receipt Date: 20221214
  Transmission Date: 20230113
  Serious: No
  Sender: FDA-Public Use
  Company Number: US-ABBVIE-22K-163-4524703-00

PATIENT
  Sex: Female
  Weight: 107.5 kg

DRUGS (2)
  1. HUMIRA [Suspect]
     Active Substance: ADALIMUMAB
     Indication: Rheumatoid arthritis
     Dosage: CITRATE FREE
     Route: 058
  2. MODERNA COVID-19 VACCINE [Concomitant]
     Active Substance: ELASOMERAN
     Indication: COVID-19 immunisation
     Dosage: ONE IN ONCE
     Route: 030

REACTIONS (6)
  - Glycosylated haemoglobin increased [Recovering/Resolving]
  - Back pain [Recovering/Resolving]
  - Back disorder [Recovering/Resolving]
  - Blood cholesterol increased [Unknown]
  - Asthma [Unknown]
  - Gastrooesophageal reflux disease [Unknown]
